FAERS Safety Report 9798762 (Version 3)
Quarter: 2015Q3

REPORT INFORMATION
  Report Type: Spontaneous
  Country: US (occurrence: US)
  Receive Date: 20140106
  Receipt Date: 20150806
  Transmission Date: 20151125
  Serious: No
  Sender: FDA-Public Use
  Company Number: US-GILEAD-2010-0029656

PATIENT
  Age: 79 Year
  Sex: Female

DRUGS (14)
  1. LETAIRIS [Suspect]
     Active Substance: AMBRISENTAN
     Indication: PULMONARY ARTERIAL HYPERTENSION
     Route: 048
     Dates: start: 20100518
  2. ENALAPRIL [Concomitant]
     Active Substance: ENALAPRIL
  3. CALCIUM [Concomitant]
     Active Substance: CALCIUM
  4. MVT [Concomitant]
  5. FIORICET [Concomitant]
     Active Substance: ACETAMINOPHEN\BUTALBITAL\CAFFEINE
  6. ZOMIG [Concomitant]
     Active Substance: ZOLMITRIPTAN
  7. CRESTOR [Concomitant]
     Active Substance: ROSUVASTATIN CALCIUM
  8. CELEXA [Concomitant]
     Active Substance: CITALOPRAM HYDROBROMIDE
  9. B COMPLETE [Concomitant]
  10. COQ10 [Concomitant]
     Active Substance: UBIDECARENONE
  11. GLUCOSAMINE/CHONDROITIN [Concomitant]
  12. METOPROLOL [Concomitant]
     Active Substance: METOPROLOL
  13. WARFARIN [Concomitant]
     Active Substance: WARFARIN
  14. VITAMIN D [Concomitant]
     Active Substance: CHOLECALCIFEROL

REACTIONS (10)
  - Fatigue [Not Recovered/Not Resolved]
  - Palpitations [Recovered/Resolved]
  - Sinusitis [Recovering/Resolving]
  - Rash pruritic [Not Recovered/Not Resolved]
  - Dyspnoea [Not Recovered/Not Resolved]
  - Nasal congestion [Recovering/Resolving]
  - Headache [Not Recovered/Not Resolved]
  - Tinnitus [Not Recovered/Not Resolved]
  - Muscular weakness [Not Recovered/Not Resolved]
  - Epistaxis [Recovered/Resolved]

NARRATIVE: CASE EVENT DATE: 2010
